FAERS Safety Report 11510168 (Version 1)
Quarter: 2015Q3

REPORT INFORMATION
  Report Type: Spontaneous
  Country: US (occurrence: US)
  Receive Date: 20150915
  Receipt Date: 20150915
  Transmission Date: 20151125
  Serious: No
  Sender: FDA-Public Use
  Company Number: US-JNJFOC-20150803404

PATIENT
  Age: 70 Year
  Sex: Male
  Weight: 108.86 kg

DRUGS (1)
  1. TYLENOL EXTRA STRENGTH [Suspect]
     Active Substance: ACETAMINOPHEN
     Indication: CHEST PAIN
     Route: 048
     Dates: start: 20150802

REACTIONS (4)
  - Diarrhoea [Not Recovered/Not Resolved]
  - Incorrect drug administration duration [Unknown]
  - Drug administration error [Unknown]
  - Product use issue [Unknown]

NARRATIVE: CASE EVENT DATE: 2015
